FAERS Safety Report 6600209-2 (Version None)
Quarter: 2010Q1

REPORT INFORMATION
  Report Type: 
  Country: None (occurrence: None)
  Receive Date: 20100224
  Receipt Date: 20100212
  Transmission Date: 20100710
  Serious: Yes (Hospitalization)
  Sender: FDA-Public Use
  Company Number: B0635221A

PATIENT
  Sex: Male
  Weight: 70 kg

DRUGS (19)
  1. PAZOPANIB [Suspect]
     Indication: NEOPLASM
     Route: 048
     Dates: start: 20100119, end: 20100211
  2. IFOSFAMIDE [Suspect]
     Indication: NEOPLASM
     Route: 042
     Dates: start: 20100125, end: 20100127
  3. PREDNISOLONE [Concomitant]
     Dosage: 5MG TWICE PER DAY
     Route: 048
     Dates: start: 20100125
  4. HYDROCORTISON [Concomitant]
     Dosage: 100MG THREE TIMES PER DAY
     Route: 042
     Dates: start: 20100215
  5. NATRIUM CHLORIDE [Concomitant]
     Route: 042
     Dates: start: 20100211
  6. POTASSIUM CHLORIDE + POTASSIUM PHOSPHATE + SODIUM CHLORIDE [Concomitant]
     Dosage: 10ML THREE TIMES PER DAY
     Route: 042
     Dates: start: 20100125, end: 20100128
  7. MOVICOLON [Concomitant]
     Route: 048
     Dates: start: 20100129
  8. METOCLOPRAMIDE HYDROCHLORIDE [Concomitant]
     Route: 048
     Dates: start: 20100129, end: 20100130
  9. ESOMEPRAZOLE MAGNESIUM [Concomitant]
     Route: 048
     Dates: start: 20100125
  10. PARACETAMOL [Concomitant]
  11. DICLOFENAC [Concomitant]
     Dosage: 75MG TWICE PER DAY
     Route: 048
     Dates: start: 20100125
  12. FENTANYL-100 [Concomitant]
     Route: 058
     Dates: start: 20100211
  13. FUROSEMIDE [Concomitant]
     Route: 042
     Dates: start: 20100127, end: 20100130
  14. GLUCOSE [Concomitant]
     Route: 042
     Dates: start: 20100125, end: 20100128
  15. CALCIUM CARBONATE [Concomitant]
     Dosage: 500MG TWICE PER DAY
     Route: 048
     Dates: start: 20100125, end: 20100130
  16. LYCOPENE [Concomitant]
     Dosage: 10MG PER DAY
     Route: 048
     Dates: start: 20100125, end: 20100125
  17. DUTASTERIDE [Concomitant]
     Dosage: .5MG PER DAY
     Route: 048
     Dates: start: 20100125, end: 20100125
  18. OXYCODONE HCL [Concomitant]
     Dates: start: 20100125, end: 20100130
  19. GOSERELIN [Concomitant]
     Route: 058
     Dates: start: 20100125, end: 20100130

REACTIONS (4)
  - ANAL FISTULA [None]
  - ANAL ULCER [None]
  - PROCTALGIA [None]
  - RECTAL HAEMORRHAGE [None]
